FAERS Safety Report 5472764-X (Version None)
Quarter: 2007Q4

REPORT INFORMATION
  Report Type: 
  Country: None (occurrence: None)
  Receive Date: 20071001
  Receipt Date: 20070207
  Transmission Date: 20080405
  Serious: No
  Sender: FDA-Public Use
  Company Number: US-ASTRAZENECA-2006UW23716

PATIENT
  Age: 75 Year
  Sex: Female
  Weight: 78 kg

DRUGS (7)
  1. ARIMIDEX [Suspect]
     Indication: BREAST CANCER
     Route: 048
     Dates: start: 20060201
  2. VITAMIN D [Concomitant]
  3. CALCIUM [Concomitant]
  4. ZIAC [Concomitant]
  5. HYTRIN [Concomitant]
  6. LIPITOR [Concomitant]
  7. TRICOR [Concomitant]

REACTIONS (5)
  - ALOPECIA [None]
  - ARTHRALGIA [None]
  - ARTHRITIS [None]
  - GAIT DISTURBANCE [None]
  - MUSCLE STRAIN [None]
